FAERS Safety Report 23268355 (Version 1)
Quarter: 2023Q4

REPORT INFORMATION
  Report Type: Spontaneous
  Country: CA (occurrence: CA)
  Receive Date: 20231206
  Receipt Date: 20231206
  Transmission Date: 20240109
  Serious: Yes (Hospitalization, Disabling)
  Sender: FDA-Public Use
  Company Number: CA-FreseniusKabi-FK202319741

PATIENT
  Age: 96 Year
  Sex: Male
  Weight: 68 kg

DRUGS (9)
  1. VANCOMYCIN [Suspect]
     Active Substance: VANCOMYCIN
     Indication: Product used for unknown indication
     Dosage: FOA - NOT SPECIFIED
  2. FORTAZ [Suspect]
     Active Substance: CEFTAZIDIME SODIUM
     Indication: Cellulitis
     Dosage: FOA - POWDER FOR SOLUTION INTRAVENOUS?ROA - INTRAVENOUS (NOT OTHERWISE SPECIFIED)
  3. ACETAMINOPHEN [Concomitant]
     Active Substance: ACETAMINOPHEN
     Indication: Product used for unknown indication
     Dosage: FOA - TABLET
  4. AMLODIPINE [Concomitant]
     Active Substance: AMLODIPINE BESYLATE
     Indication: Product used for unknown indication
     Dosage: FOA - TABLET?ROA - UNKNOWN
  5. MIDAZOLAM HYDROCHLORIDE [Concomitant]
     Active Substance: MIDAZOLAM HYDROCHLORIDE
     Indication: Product used for unknown indication
  6. MORPHINE [Concomitant]
     Active Substance: MORPHINE
     Indication: Product used for unknown indication
     Dosage: FOA - NOT SPECIFIED
  7. PREGABALIN [Concomitant]
     Active Substance: PREGABALIN
     Indication: Product used for unknown indication
     Dosage: FOA - CAPSULES
  8. SENNA [Concomitant]
     Active Substance: SENNA LEAF\SENNOSIDES\SENNOSIDES A AND B
     Indication: Product used for unknown indication
     Dosage: FOA - NOT SPECIFIED
  9. VITAMIN D3 [Concomitant]
     Active Substance: CHOLECALCIFEROL
     Indication: Product used for unknown indication
     Dosage: FOA - TABLET

REACTIONS (4)
  - Clostridium test positive [Recovering/Resolving]
  - Renal impairment [Recovering/Resolving]
  - Thrombosis [Recovering/Resolving]
  - SARS-CoV-2 test positive [Recovering/Resolving]
